FAERS Safety Report 8430287-X (Version None)
Quarter: 2012Q2

REPORT INFORMATION
  Report Type: 
  Country: None (occurrence: None)
  Receive Date: 20120612
  Receipt Date: 20120531
  Transmission Date: 20120825
  Serious: Yes (Other)
  Sender: FDA-Public Use
  Company Number: US-ELI_LILLY_AND_COMPANY-US201206001648

PATIENT
  Age: 44 Year
  Sex: Female

DRUGS (2)
  1. LEVOXYL [Concomitant]
  2. CYMBALTA [Suspect]
     Indication: FIBROMYALGIA
     Dosage: 30 MG, QD
     Dates: start: 20120525, end: 20120525

REACTIONS (8)
  - COLD SWEAT [None]
  - NAUSEA [None]
  - FEAR [None]
  - CHILLS [None]
  - DYSPNOEA [None]
  - MALAISE [None]
  - FATIGUE [None]
  - LOSS OF CONSCIOUSNESS [None]
